FAERS Safety Report 9992434 (Version 2)
Quarter: 2014Q1

REPORT INFORMATION
  Report Type: Report from Study
  Country: FR (occurrence: FR)
  Receive Date: 20140310
  Receipt Date: 20140321
  Transmission Date: 20141002
  Serious: Yes (Hospitalization, Other)
  Sender: FDA-Public Use
  Company Number: FR-GLAXOSMITHKLINE-B0974172A

PATIENT
  Age: 67 Year
  Sex: Female
  Weight: 60 kg

DRUGS (28)
  1. ZANAMIVIR [Suspect]
     Indication: INFLUENZA
     Route: 042
     Dates: start: 20140121, end: 20140202
  2. NEORAL [Suspect]
     Indication: LUNG TRANSPLANT
  3. CELLCEPT [Suspect]
     Indication: LUNG TRANSPLANT
     Dosage: 500MG TWICE PER DAY
  4. CORTANCYL [Suspect]
     Indication: LUNG TRANSPLANT
     Dosage: 7.5MG PER DAY
  5. UNSPECIFIED IMMUNOSUPPRESSANTS [Suspect]
     Indication: LUNG TRANSPLANT
     Route: 065
  6. LOVENOX [Concomitant]
     Indication: THROMBOSIS PROPHYLAXIS
     Dates: start: 201401, end: 201401
  7. AUGMENTIN [Concomitant]
     Indication: DYSPNOEA
     Dates: start: 20140110
  8. ZITROMAX [Concomitant]
     Dosage: 250MG PER DAY
  9. BACTRIM [Concomitant]
  10. INIPOMP [Concomitant]
     Dosage: 40MG PER DAY
  11. TAREG [Concomitant]
     Dosage: 160MG PER DAY
  12. FENOFIBRATE [Concomitant]
     Dosage: 300MG PER DAY
  13. SECTRAL [Concomitant]
     Dosage: 200MG TWICE PER DAY
  14. TAMIFLU [Concomitant]
     Indication: INFLUENZA
     Dates: start: 20140116, end: 20140121
  15. TAZOCILLINE [Concomitant]
     Dates: start: 2014
  16. CIPROFLOXACINE [Concomitant]
     Dates: start: 2014
  17. SOLUMEDROL [Concomitant]
     Dates: start: 20140120
  18. ZOVIRAX [Concomitant]
     Dates: start: 20140122
  19. PROTOXYDE D AZOTE [Concomitant]
     Dates: start: 20140120
  20. TRACRIUM [Concomitant]
  21. HYPNOVEL [Concomitant]
  22. FENTANYL [Concomitant]
  23. MERONEM [Concomitant]
     Dates: start: 20140126
  24. AMIKLIN [Concomitant]
     Dates: start: 20140126
  25. LASILIX [Concomitant]
  26. VFEND [Concomitant]
     Dates: start: 20140130
  27. NORADRENALINE [Concomitant]
  28. INFLUENZA VACCINE [Concomitant]
     Indication: PROPHYLAXIS

REACTIONS (1)
  - Renal failure [Not Recovered/Not Resolved]
